FAERS Safety Report 6516841-0 (Version None)
Quarter: 2009Q4

REPORT INFORMATION
  Report Type: 
  Country: None (occurrence: None)
  Receive Date: 20091223
  Receipt Date: 20091219
  Transmission Date: 20100525
  Serious: Yes (Hospitalization)
  Sender: FDA-Public Use
  Company Number: PHHO2009IT14860

PATIENT
  Sex: Male
  Weight: 84 kg

DRUGS (1)
  1. AFINITOR [Suspect]
     Indication: METASTATIC RENAL CELL CARCINOMA
     Dosage: 10 MG
     Route: 048
     Dates: start: 20091029, end: 20091117

REACTIONS (2)
  - ABDOMINAL PAIN [None]
  - LARGE INTESTINAL OBSTRUCTION [None]
